FAERS Safety Report 5247258-7 (Version None)
Quarter: 2007Q1

REPORT INFORMATION
  Report Type: 
  Country: None (occurrence: None)
  Receive Date: 20070227
  Receipt Date: 20070214
  Transmission Date: 20070707
  Serious: Yes (Other)
  Sender: FDA-Public Use
  Company Number: PHNU2006DE03372

PATIENT
  Age: 48 Year
  Sex: Female

DRUGS (3)
  1. VITAMINS NOS [Suspect]
     Route: 065
  2. FEMARA [Suspect]
     Dosage: 2.5 MG, QD
     Route: 048
     Dates: start: 20060207, end: 20060805
  3. FEMARA [Suspect]
     Dosage: 2.5 MG, QD
     Route: 048
     Dates: start: 20060822, end: 20060927

REACTIONS (16)
  - ANAEMIA [None]
  - APATHY [None]
  - BIOPSY BONE MARROW ABNORMAL [None]
  - BONE MARROW FAILURE [None]
  - DEPRESSION [None]
  - ERYTHROPOIESIS ABNORMAL [None]
  - FATIGUE [None]
  - HAEMATOCRIT DECREASED [None]
  - HAEMOGLOBIN DECREASED [None]
  - MACROCYTOSIS [None]
  - MEAN CELL HAEMOGLOBIN [None]
  - MEGAKARYOCYTES DECREASED [None]
  - PLATELET DISORDER [None]
  - RED BLOOD CELL COUNT DECREASED [None]
  - THROMBOCYTOPENIA [None]
  - WHITE BLOOD CELL COUNT DECREASED [None]
